FAERS Safety Report 7682841-0 (Version None)
Quarter: 2011Q3

REPORT INFORMATION
  Report Type: 
  Country: None (occurrence: None)
  Receive Date: 20110815
  Receipt Date: 20110805
  Transmission Date: 20111222
  Serious: Yes (Other)
  Sender: FDA-Public Use
  Company Number: US-ROCHE-512843

PATIENT
  Sex: Female
  Weight: 65.8 kg

DRUGS (18)
  1. CLEOCIN T [Concomitant]
     Indication: ACNE
     Dates: start: 20021018
  2. RETIN-A [Concomitant]
  3. ACCUTANE [Suspect]
     Dosage: REPORTED AS 40MG OD
     Route: 048
     Dates: start: 20030509
  4. CLINDAMYCIN LOTION [Concomitant]
     Dates: start: 20020702
  5. SULFAMETHOXAZOLE AND TRIMETHOPRIM [Concomitant]
     Dates: start: 20030425
  6. MINOCYCLINE HCL [Concomitant]
     Indication: ACNE
     Dates: start: 20020222
  7. METROCREAM [Concomitant]
     Indication: ACNE
     Dates: start: 20020222
  8. ACCUTANE [Suspect]
     Dosage: REPORTED AS 40MG BID ALTERNATING WITH 40 MG OD
     Route: 048
     Dates: start: 20030609, end: 20031019
  9. ORTHO TRI-CYCLEN [Concomitant]
  10. NEUTROGENA [Concomitant]
     Dates: start: 20030425
  11. PREVACID [Concomitant]
     Dates: start: 20020426
  12. PLEXION [Concomitant]
     Indication: ACNE
     Dates: start: 20021018
  13. CLINDAMYCIN TOPICAL GEL [Concomitant]
     Indication: ACNE
     Dates: start: 20020426
  14. SULFAMETHOXAZOLE AND TRIMETHOPRIM [Concomitant]
     Dates: start: 20021107
  15. ERYTHROMYCIN [Concomitant]
  16. SULFAMETHOXAZOLE AND TRIMETHOPRIM [Concomitant]
     Indication: ACNE
     Dates: start: 20021018
  17. CLEOCIN T [Concomitant]
     Dates: start: 20030425
  18. DOXYCYCLINE [Concomitant]
     Indication: ACNE
     Dates: start: 20020426

REACTIONS (20)
  - ADENOMA BENIGN [None]
  - DEPRESSION [None]
  - ADNEXA UTERI MASS [None]
  - IRRITABLE BOWEL SYNDROME [None]
  - COLITIS ULCERATIVE [None]
  - GASTROINTESTINAL DISORDER [None]
  - BACK PAIN [None]
  - ROAD TRAFFIC ACCIDENT [None]
  - CROHN'S DISEASE [None]
  - SCOLIOSIS [None]
  - HEPATIC CYST [None]
  - INFLAMMATORY BOWEL DISEASE [None]
  - MYALGIA [None]
  - PAIN [None]
  - COLITIS [None]
  - MYOSITIS [None]
  - MOUTH CYST [None]
  - DRY SKIN [None]
  - PROCTITIS [None]
  - OVARIAN CYST [None]
